FAERS Safety Report 17166573 (Version 1)
Quarter: 2019Q4

REPORT INFORMATION
  Report Type: Spontaneous
  Country: CA (occurrence: CA)
  Receive Date: 20191217
  Receipt Date: 20191217
  Transmission Date: 20200122
  Serious: Yes (Life-Threatening)
  Sender: FDA-Public Use
  Company Number: CA-PFIZER INC-2019541026

PATIENT
  Age: 64 Year
  Sex: Female
  Weight: 83 kg

DRUGS (5)
  1. PACLITAXEL. [Suspect]
     Active Substance: PACLITAXEL
     Indication: BREAST CANCER
     Dosage: 80 MG/M2, WEEKLY
     Route: 042
  2. DIPHENHYDRAMINE. [Concomitant]
     Active Substance: DIPHENHYDRAMINE
     Dosage: 0.025 MG/KG, UNK
     Route: 065
  3. DEXAMETHASONE. [Concomitant]
     Active Substance: DEXAMETHASONE
     Dosage: UNK
  4. RANITIDINE. [Concomitant]
     Active Substance: RANITIDINE
     Dosage: UNK
  5. DIPHENHYDRAMINE. [Concomitant]
     Active Substance: DIPHENHYDRAMINE
     Dosage: UNK

REACTIONS (3)
  - Head discomfort [Recovered/Resolved]
  - Hot flush [Recovered/Resolved]
  - Chest discomfort [Recovered/Resolved]
